FAERS Safety Report 24352279 (Version 1)
Quarter: 2024Q3

REPORT INFORMATION
  Report Type: Spontaneous
  Country: US (occurrence: US)
  Receive Date: 20240923
  Receipt Date: 20240923
  Transmission Date: 20241017
  Serious: No
  Sender: PERRIGO
  Company Number: US-PERRIGO-24US006138

PATIENT
  Age: 67 Year
  Sex: Male
  Weight: 74.83 kg

DRUGS (2)
  1. NASONEX [Suspect]
     Active Substance: MOMETASONE FUROATE
     Indication: Hypersensitivity
     Dosage: 200 MCG, QD
     Route: 045
     Dates: start: 20240624, end: 20240625
  2. NASONEX [Suspect]
     Active Substance: MOMETASONE FUROATE
     Dosage: 200 MCG, QD
     Route: 045
     Dates: start: 20240520, end: 20240620

REACTIONS (2)
  - Product after taste [Not Recovered/Not Resolved]
  - Accidental exposure to product [Unknown]

NARRATIVE: CASE EVENT DATE: 20240624
